FAERS Safety Report 8585709-0 (Version None)
Quarter: 2012Q3

REPORT INFORMATION
  Report Type: 
  Country: None (occurrence: None)
  Receive Date: 20120810
  Receipt Date: 20120806
  Transmission Date: 20120928
  Serious: Yes (Hospitalization, Other)
  Sender: FDA-Public Use
  Company Number: US-PFIZER INC-2012191309

PATIENT
  Age: 66 Year
  Sex: Female
  Weight: 79 kg

DRUGS (10)
  1. AMITRIPTYLINE [Concomitant]
     Dosage: UNK
  2. GLYBURIDE AND METFORMIN HYDROCHLORIDE [Concomitant]
     Indication: DIABETES MELLITUS
     Dosage: 2.5/500 MG, 3X/DAY
  3. CORTISONE ACETATE [Suspect]
     Indication: PAIN IN EXTREMITY
  4. CORTISONE ACETATE [Suspect]
     Indication: BACK PAIN
     Dosage: UNK
     Dates: start: 20120301, end: 20120710
  5. GLYBURIDE AND METFORMIN HYDROCHLORIDE [Concomitant]
     Dosage: 2.5/500 MG, 2X/DAY
  6. GLYBURIDE AND METFORMIN HYDROCHLORIDE [Concomitant]
     Dosage: 2.5/500 MG, UNK
  7. DOXYCYCLINE [Concomitant]
     Dosage: UNK
  8. LIDOCAINE [Concomitant]
     Dosage: UNK
  9. GABAPENTIN [Concomitant]
     Dosage: UNK
  10. LISINOPRIL [Concomitant]
     Dosage: UNK

REACTIONS (2)
  - PAIN [None]
  - CSF PROTEIN INCREASED [None]
